FAERS Safety Report 4653136-4 (Version None)
Quarter: 2005Q2

REPORT INFORMATION
  Report Type: 
  Country: None (occurrence: None)
  Receive Date: 20050502
  Receipt Date: 20050502
  Transmission Date: 20051028
  Serious: Yes (Hospitalization)
  Sender: FDA-Public Use
  Company Number: None

PATIENT
  Age: 85 Year
  Sex: Male
  Weight: 75.9 kg

DRUGS (16)
  1. WARFARIN    5MG [Suspect]
     Indication: PULMONARY EMBOLISM
     Dosage: 5MG   DAILY   ORAL
     Route: 048
     Dates: start: 20050211, end: 20050227
  2. ASPIRIN [Suspect]
     Indication: CARDIAC FAILURE CONGESTIVE
     Dosage: 81MG   DAILY   ORAL
     Route: 048
  3. ASPIRIN [Suspect]
     Indication: CORONARY ARTERY DISEASE
     Dosage: 81MG   DAILY   ORAL
     Route: 048
  4. CHLORPHENIRAMINE MALEATE [Concomitant]
  5. DOCUSATE NA [Concomitant]
  6. FERROUS SO4 [Concomitant]
  7. FLUNISOLIDE [Concomitant]
  8. SERTRALINE HCL [Concomitant]
  9. SIMVASTATIN [Concomitant]
  10. SORBITOL [Concomitant]
  11. ALBUTEROL [Concomitant]
  12. IPRATROPIUM BROMIDE [Concomitant]
  13. HYDROCORTISONE [Concomitant]
  14. TAMSULOSIN HCL [Concomitant]
  15. COUMADIN [Concomitant]
  16. ASPIRIN [Concomitant]

REACTIONS (8)
  - ASTHENIA [None]
  - FATIGUE [None]
  - GASTRIC POLYPS [None]
  - GASTRIC ULCER [None]
  - HAEMATOCHEZIA [None]
  - INTESTINAL POLYP [None]
  - MUCOSAL HAEMORRHAGE [None]
  - PROCEDURAL SITE REACTION [None]
